FAERS Safety Report 24259627 (Version 1)
Quarter: 2024Q3

REPORT INFORMATION
  Report Type: Spontaneous
  Country: CA (occurrence: CA)
  Receive Date: 20240828
  Receipt Date: 20240828
  Transmission Date: 20241016
  Serious: Yes (Disabling)
  Sender: HLS THERAPEUTICS
  Company Number: CA-HLS-202402029

PATIENT
  Age: 76 Year
  Sex: Male

DRUGS (85)
  1. CANDESARTAN [Suspect]
     Active Substance: CANDESARTAN
     Indication: Product used for unknown indication
     Route: 065
  2. CITALOPRAM [Concomitant]
     Active Substance: CITALOPRAM\CITALOPRAM HYDROBROMIDE
     Indication: Antipsychotic therapy
     Route: 065
  3. CLONAZEPAM [Concomitant]
     Active Substance: CLONAZEPAM
     Indication: Antipsychotic therapy
     Dosage: TABLETS DOSAGE FORM
     Route: 065
  4. CLOZAPINE [Suspect]
     Active Substance: CLOZAPINE
     Indication: Dementia with Lewy bodies
     Dosage: 1 EVERY 1 DAYS?AMOUNT: 50 MILLIGRAM?TABLETS DOSAGE FORM
     Route: 065
  5. CLOZAPINE [Suspect]
     Active Substance: CLOZAPINE
     Indication: Neuropsychological symptoms
     Dosage: 1 EVERY 1 DAYS?AMOUNT: 50 MILLIGRAM?TABLETS DOSAGE FORM
     Route: 065
  6. CLOZAPINE [Suspect]
     Active Substance: CLOZAPINE
     Indication: Dementia with Lewy bodies
     Dosage: 1 EVERY 1 DAYS?AMOUNT: 6.25 MILLIGRAM?TABLETS DOSAGE FORM
     Route: 065
  7. CLOZAPINE [Suspect]
     Active Substance: CLOZAPINE
     Indication: Neuropsychological symptoms
     Dosage: 1 EVERY 1 DAYS?AMOUNT: 6.25 MILLIGRAM?TABLETS DOSAGE FORM
     Route: 065
  8. CLOZAPINE [Suspect]
     Active Substance: CLOZAPINE
     Indication: Dementia with Lewy bodies
     Dosage: TABLETS DOSAGE FORM
     Route: 065
  9. CLOZAPINE [Suspect]
     Active Substance: CLOZAPINE
     Indication: Neuropsychological symptoms
     Dosage: TABLETS DOSAGE FORM
     Route: 065
  10. LORAZEPAM [Concomitant]
     Active Substance: LORAZEPAM
     Indication: Dementia
     Dosage: NOT SPECIFIED DOSAGE FORM
     Route: 065
  11. LOXAPINE [Concomitant]
     Active Substance: LOXAPINE
     Indication: Dementia
     Dosage: NOT SPECIFIED DOSAGE FORM
     Route: 065
  12. OLANZAPINE [Suspect]
     Active Substance: OLANZAPINE
     Indication: Social (pragmatic) communication disorder
     Dosage: 1 EVERY 1 DAYS?AMOUNT: 2.5 MILLIGRAM?NOT SPECIFIED DOSAGE FORM
     Route: 065
  13. OLANZAPINE [Suspect]
     Active Substance: OLANZAPINE
     Indication: Social (pragmatic) communication disorder
     Dosage: NOT SPECIFIED DOSAGE FORM
     Route: 065
  14. QUETIAPINE [Suspect]
     Active Substance: QUETIAPINE
     Indication: Hallucination, visual
     Dosage: 1 EVERY 1 DAYS?AMOUNT: 100 MILLIGRAM?TABLETS DOSAGE FORM
     Route: 065
  15. QUETIAPINE [Suspect]
     Active Substance: QUETIAPINE
     Indication: Hallucination, visual
     Dosage: 1 EVERY 1 DAYS?AMOUNT: 12.5 MILLIGRAM?TABLETS DOSAGE FORM
     Route: 065
  16. QUETIAPINE [Suspect]
     Active Substance: QUETIAPINE
     Indication: Hallucination, visual
     Dosage: 2 EVERY 1 DAYS?AMOUNT: 25 MILLIGRAM?TABLETS DOSAGE FORM
     Route: 065
  17. QUETIAPINE [Suspect]
     Active Substance: QUETIAPINE
     Indication: Hallucination, visual
     Dosage: 3 EVERY 1 DAYS?AMOUNT: 12.5 MILLIGRAM?TABLETS DOSAGE FORM
     Route: 065
  18. QUETIAPINE [Suspect]
     Active Substance: QUETIAPINE
     Indication: Hallucination, visual
     Dosage: TABLETS DOSAGE FORM
     Route: 065
  19. RISPERIDONE [Suspect]
     Active Substance: RISPERIDONE
     Indication: Antipsychotic therapy
     Dosage: 2 EVERY 1 DAYS?AMOUNT: 0.25 MILLIGRAM?NOT SPECIFIED DOSAGE FORM
     Route: 065
  20. RIVASTIGMINE [Concomitant]
     Active Substance: RIVASTIGMINE
     Indication: Antipsychotic therapy
     Dosage: CAPSULES DOSAGE FORM
     Route: 065
  21. TRAZODONE [Concomitant]
     Active Substance: TRAZODONE HYDROCHLORIDE
     Indication: Antipsychotic therapy
     Dosage: 100.0 MILLIGRAM 1 EVERY 24 HOURS
     Route: 065
  22. TRAZODONE [Concomitant]
     Active Substance: TRAZODONE HYDROCHLORIDE
     Indication: Antipsychotic therapy
     Dosage: 25.0 MILLIGRAM 1 EVERY 24 HOURS
     Route: 065
  23. TRAZODONE [Concomitant]
     Active Substance: TRAZODONE HYDROCHLORIDE
     Indication: Antipsychotic therapy
     Dosage: 50.0 MILLIGRAM 1 EVERY 24 HOURS
     Route: 065
  24. TRAZODONE [Concomitant]
     Active Substance: TRAZODONE HYDROCHLORIDE
     Indication: Antipsychotic therapy
     Dosage: 50.0 MILLIGRAM 3 EVERY 1 DAYS
     Route: 065
  25. TRAZODONE [Concomitant]
     Active Substance: TRAZODONE HYDROCHLORIDE
     Indication: Antipsychotic therapy
     Dosage: TABLETS DOSAGE FORM
     Route: 065
  26. OLANZAPINE [Suspect]
     Active Substance: OLANZAPINE
     Indication: Social (pragmatic) communication disorder
     Dosage: 1 EVERY 24 HOURS?AMOUNT: 2.5 MILLIGRAM
     Route: 065
  27. OLANZAPINE [Suspect]
     Active Substance: OLANZAPINE
     Indication: Social (pragmatic) communication disorder
     Route: 065
  28. CANDESARTAN CILEXETIL [Suspect]
     Active Substance: CANDESARTAN CILEXETIL
     Indication: Dementia
     Dosage: 1 EVERY 1 DAYS?AMOUNT: 0.5 MILLIGRAM?TABLETS DOSAGE FORM
     Route: 065
  29. CANDESARTAN CILEXETIL [Suspect]
     Active Substance: CANDESARTAN CILEXETIL
     Indication: Dementia with Lewy bodies
     Dosage: 1 EVERY 1 DAYS?AMOUNT: 0.5 MILLIGRAM?TABLETS DOSAGE FORM
     Route: 065
  30. CANDESARTAN CILEXETIL [Suspect]
     Active Substance: CANDESARTAN CILEXETIL
     Indication: Antipsychotic therapy
     Dosage: 1 EVERY 1 DAYS?AMOUNT: 0.5 MILLIGRAM?TABLETS DOSAGE FORM
     Route: 065
  31. CANDESARTAN CILEXETIL [Suspect]
     Active Substance: CANDESARTAN CILEXETIL
     Indication: Neuropsychological symptoms
     Dosage: 1 EVERY 1 DAYS?AMOUNT: 0.5 MILLIGRAM?TABLETS DOSAGE FORM
     Route: 065
  32. CANDESARTAN CILEXETIL [Suspect]
     Active Substance: CANDESARTAN CILEXETIL
     Indication: Dementia
     Dosage: 1 EVERY 1 DAYS?AMOUNT: 50 MILLIGRAM?TABLETS DOSAGE FORM
     Route: 065
  33. CANDESARTAN CILEXETIL [Suspect]
     Active Substance: CANDESARTAN CILEXETIL
     Indication: Dementia with Lewy bodies
     Dosage: 1 EVERY 1 DAYS?AMOUNT: 50 MILLIGRAM?TABLETS DOSAGE FORM
     Route: 065
  34. CANDESARTAN CILEXETIL [Suspect]
     Active Substance: CANDESARTAN CILEXETIL
     Indication: Antipsychotic therapy
     Dosage: 1 EVERY 1 DAYS?AMOUNT: 50 MILLIGRAM?TABLETS DOSAGE FORM
     Route: 065
  35. CANDESARTAN CILEXETIL [Suspect]
     Active Substance: CANDESARTAN CILEXETIL
     Indication: Neuropsychological symptoms
     Dosage: 1 EVERY 1 DAYS?AMOUNT: 50 MILLIGRAM?TABLETS DOSAGE FORM
     Route: 065
  36. CANDESARTAN CILEXETIL [Suspect]
     Active Substance: CANDESARTAN CILEXETIL
     Indication: Dementia
     Dosage: 1 EVERY 1 DAYS?AMOUNT: 6.25 MILLIGRAM?TABLETS DOSAGE FORM
     Route: 065
  37. CANDESARTAN CILEXETIL [Suspect]
     Active Substance: CANDESARTAN CILEXETIL
     Indication: Dementia with Lewy bodies
     Dosage: 1 EVERY 1 DAYS?AMOUNT: 6.25 MILLIGRAM?TABLETS DOSAGE FORM
     Route: 065
  38. CANDESARTAN CILEXETIL [Suspect]
     Active Substance: CANDESARTAN CILEXETIL
     Indication: Antipsychotic therapy
     Dosage: 1 EVERY 1 DAYS?AMOUNT: 6.25 MILLIGRAM?TABLETS DOSAGE FORM
     Route: 065
  39. CANDESARTAN CILEXETIL [Suspect]
     Active Substance: CANDESARTAN CILEXETIL
     Indication: Neuropsychological symptoms
     Dosage: 1 EVERY 1 DAYS?AMOUNT: 6.25 MILLIGRAM?TABLETS DOSAGE FORM
     Route: 065
  40. CANDESARTAN CILEXETIL [Suspect]
     Active Substance: CANDESARTAN CILEXETIL
     Indication: Dementia
     Dosage: 1 EVERY 24 HOURS?AMOUNT: 20 MILLIGRAM
     Route: 065
  41. CANDESARTAN CILEXETIL [Suspect]
     Active Substance: CANDESARTAN CILEXETIL
     Indication: Dementia with Lewy bodies
     Dosage: 1 EVERY 24 HOURS?AMOUNT: 20 MILLIGRAM
     Route: 065
  42. CANDESARTAN CILEXETIL [Suspect]
     Active Substance: CANDESARTAN CILEXETIL
     Indication: Antipsychotic therapy
     Dosage: 1 EVERY 24 HOURS?AMOUNT: 20 MILLIGRAM
     Route: 065
  43. CANDESARTAN CILEXETIL [Suspect]
     Active Substance: CANDESARTAN CILEXETIL
     Indication: Neuropsychological symptoms
     Dosage: 1 EVERY 24 HOURS?AMOUNT: 20 MILLIGRAM
     Route: 065
  44. CANDESARTAN CILEXETIL [Suspect]
     Active Substance: CANDESARTAN CILEXETIL
     Indication: Dementia
     Dosage: 1 EVERY 24 HOURS?AMOUNT: 8 MILLIGRAM
     Route: 048
  45. CANDESARTAN CILEXETIL [Suspect]
     Active Substance: CANDESARTAN CILEXETIL
     Indication: Dementia with Lewy bodies
     Dosage: 1 EVERY 24 HOURS?AMOUNT: 8 MILLIGRAM
     Route: 048
  46. CANDESARTAN CILEXETIL [Suspect]
     Active Substance: CANDESARTAN CILEXETIL
     Indication: Antipsychotic therapy
     Dosage: 1 EVERY 24 HOURS?AMOUNT: 8 MILLIGRAM
     Route: 048
  47. CANDESARTAN CILEXETIL [Suspect]
     Active Substance: CANDESARTAN CILEXETIL
     Indication: Neuropsychological symptoms
     Dosage: 1 EVERY 24 HOURS?AMOUNT: 8 MILLIGRAM
     Route: 048
  48. CANDESARTAN CILEXETIL [Suspect]
     Active Substance: CANDESARTAN CILEXETIL
     Indication: Dementia
     Route: 065
  49. CANDESARTAN CILEXETIL [Suspect]
     Active Substance: CANDESARTAN CILEXETIL
     Indication: Dementia with Lewy bodies
     Route: 065
  50. CANDESARTAN CILEXETIL [Suspect]
     Active Substance: CANDESARTAN CILEXETIL
     Indication: Antipsychotic therapy
     Route: 065
  51. CANDESARTAN CILEXETIL [Suspect]
     Active Substance: CANDESARTAN CILEXETIL
     Indication: Neuropsychological symptoms
     Route: 065
  52. CANDESARTAN CILEXETIL [Suspect]
     Active Substance: CANDESARTAN CILEXETIL
     Indication: Dementia
     Route: 065
  53. CANDESARTAN CILEXETIL [Suspect]
     Active Substance: CANDESARTAN CILEXETIL
     Indication: Dementia with Lewy bodies
     Route: 065
  54. CANDESARTAN CILEXETIL [Suspect]
     Active Substance: CANDESARTAN CILEXETIL
     Indication: Antipsychotic therapy
     Route: 065
  55. CANDESARTAN CILEXETIL [Suspect]
     Active Substance: CANDESARTAN CILEXETIL
     Indication: Neuropsychological symptoms
     Route: 065
  56. CANDESARTAN CILEXETIL [Suspect]
     Active Substance: CANDESARTAN CILEXETIL
     Indication: Dementia
     Dosage: NOT SPECIFIED DOSAGE FORM
     Route: 065
  57. CANDESARTAN CILEXETIL [Suspect]
     Active Substance: CANDESARTAN CILEXETIL
     Indication: Dementia with Lewy bodies
     Dosage: NOT SPECIFIED DOSAGE FORM
     Route: 065
  58. CANDESARTAN CILEXETIL [Suspect]
     Active Substance: CANDESARTAN CILEXETIL
     Indication: Antipsychotic therapy
     Dosage: NOT SPECIFIED DOSAGE FORM
     Route: 065
  59. CANDESARTAN CILEXETIL [Suspect]
     Active Substance: CANDESARTAN CILEXETIL
     Indication: Neuropsychological symptoms
     Dosage: NOT SPECIFIED DOSAGE FORM
     Route: 065
  60. CANDESARTAN CILEXETIL [Suspect]
     Active Substance: CANDESARTAN CILEXETIL
     Indication: Dementia
     Dosage: TABLETS DOSAGE FORM
     Route: 065
  61. CANDESARTAN CILEXETIL [Suspect]
     Active Substance: CANDESARTAN CILEXETIL
     Indication: Dementia with Lewy bodies
     Dosage: TABLETS DOSAGE FORM
     Route: 065
  62. CANDESARTAN CILEXETIL [Suspect]
     Active Substance: CANDESARTAN CILEXETIL
     Indication: Antipsychotic therapy
     Dosage: TABLETS DOSAGE FORM
     Route: 065
  63. CANDESARTAN CILEXETIL [Suspect]
     Active Substance: CANDESARTAN CILEXETIL
     Indication: Neuropsychological symptoms
     Dosage: TABLETS DOSAGE FORM
     Route: 065
  64. QUETIAPINE FUMARATE [Suspect]
     Active Substance: QUETIAPINE FUMARATE
     Indication: Hallucination, visual
     Dosage: 1 EVERY 24 HOURS?AMOUNT: 100 MILLIGRAM
     Route: 065
  65. QUETIAPINE FUMARATE [Suspect]
     Active Substance: QUETIAPINE FUMARATE
     Indication: Antipsychotic therapy
     Dosage: 1 EVERY 24 HOURS?AMOUNT: 100 MILLIGRAM
     Route: 065
  66. QUETIAPINE FUMARATE [Suspect]
     Active Substance: QUETIAPINE FUMARATE
     Indication: Hallucination, visual
     Dosage: 1 EVERY 24 HOURS?AMOUNT: 12.5 MILLIGRAM
     Route: 065
  67. QUETIAPINE FUMARATE [Suspect]
     Active Substance: QUETIAPINE FUMARATE
     Indication: Antipsychotic therapy
     Dosage: 1 EVERY 24 HOURS?AMOUNT: 12.5 MILLIGRAM
     Route: 065
  68. QUETIAPINE FUMARATE [Suspect]
     Active Substance: QUETIAPINE FUMARATE
     Indication: Hallucination, visual
     Dosage: 1 EVERY 24 HOURS?AMOUNT: 13.3 MILLIGRAM?PATCH DOSAGE FORM
     Route: 065
  69. QUETIAPINE FUMARATE [Suspect]
     Active Substance: QUETIAPINE FUMARATE
     Indication: Antipsychotic therapy
     Dosage: 1 EVERY 24 HOURS?AMOUNT: 13.3 MILLIGRAM?PATCH DOSAGE FORM
     Route: 065
  70. QUETIAPINE FUMARATE [Suspect]
     Active Substance: QUETIAPINE FUMARATE
     Indication: Hallucination, visual
     Dosage: 1 EVERY 24 HOURS?AMOUNT: 25 MILLIGRAM
     Route: 065
  71. QUETIAPINE FUMARATE [Suspect]
     Active Substance: QUETIAPINE FUMARATE
     Indication: Antipsychotic therapy
     Dosage: 1 EVERY 24 HOURS?AMOUNT: 25 MILLIGRAM
     Route: 065
  72. QUETIAPINE FUMARATE [Suspect]
     Active Substance: QUETIAPINE FUMARATE
     Indication: Hallucination, visual
     Dosage: 1 EVERY 24 HOURS?AMOUNT: 50 MILLIGRAM
     Route: 065
  73. QUETIAPINE FUMARATE [Suspect]
     Active Substance: QUETIAPINE FUMARATE
     Indication: Antipsychotic therapy
     Dosage: 1 EVERY 24 HOURS?AMOUNT: 50 MILLIGRAM
     Route: 065
  74. QUETIAPINE FUMARATE [Suspect]
     Active Substance: QUETIAPINE FUMARATE
     Indication: Hallucination, visual
     Dosage: 2 EVERY 1 DAYS?AMOUNT: 0.25 MILLIGRAM
     Route: 065
  75. QUETIAPINE FUMARATE [Suspect]
     Active Substance: QUETIAPINE FUMARATE
     Indication: Antipsychotic therapy
     Dosage: 2 EVERY 1 DAYS?AMOUNT: 0.25 MILLIGRAM
     Route: 065
  76. QUETIAPINE FUMARATE [Suspect]
     Active Substance: QUETIAPINE FUMARATE
     Indication: Hallucination, visual
     Dosage: 2 EVERY 1 DAYS?AMOUNT: 1.5 MILLIGRAM?PATCH DOSAGE FORM
     Route: 065
  77. QUETIAPINE FUMARATE [Suspect]
     Active Substance: QUETIAPINE FUMARATE
     Indication: Antipsychotic therapy
     Dosage: 2 EVERY 1 DAYS?AMOUNT: 1.5 MILLIGRAM?PATCH DOSAGE FORM
     Route: 065
  78. QUETIAPINE FUMARATE [Suspect]
     Active Substance: QUETIAPINE FUMARATE
     Indication: Hallucination, visual
     Dosage: 2 EVERY 1 DAYS?AMOUNT: 25 MILLIGRAM
     Route: 065
  79. QUETIAPINE FUMARATE [Suspect]
     Active Substance: QUETIAPINE FUMARATE
     Indication: Antipsychotic therapy
     Dosage: 2 EVERY 1 DAYS?AMOUNT: 25 MILLIGRAM
     Route: 065
  80. QUETIAPINE FUMARATE [Suspect]
     Active Substance: QUETIAPINE FUMARATE
     Indication: Hallucination, visual
     Dosage: 3 EVERY 1 DAYS?AMOUNT: 12.5 MILLIGRAM
     Route: 065
  81. QUETIAPINE FUMARATE [Suspect]
     Active Substance: QUETIAPINE FUMARATE
     Indication: Antipsychotic therapy
     Dosage: 3 EVERY 1 DAYS?AMOUNT: 12.5 MILLIGRAM
     Route: 065
  82. QUETIAPINE FUMARATE [Suspect]
     Active Substance: QUETIAPINE FUMARATE
     Indication: Hallucination, visual
     Dosage: 3 EVERY 1 DAYS?AMOUNT: 50 MILLIGRAM
     Route: 065
  83. QUETIAPINE FUMARATE [Suspect]
     Active Substance: QUETIAPINE FUMARATE
     Indication: Antipsychotic therapy
     Dosage: 3 EVERY 1 DAYS?AMOUNT: 50 MILLIGRAM
     Route: 065
  84. QUETIAPINE FUMARATE [Suspect]
     Active Substance: QUETIAPINE FUMARATE
     Indication: Hallucination, visual
     Route: 065
  85. QUETIAPINE FUMARATE [Suspect]
     Active Substance: QUETIAPINE FUMARATE
     Indication: Antipsychotic therapy
     Route: 065

REACTIONS (7)
  - Cogwheel rigidity [Not Recovered/Not Resolved]
  - Eyelid function disorder [Not Recovered/Not Resolved]
  - Fall [Not Recovered/Not Resolved]
  - Gait disturbance [Not Recovered/Not Resolved]
  - Orthostatic hypotension [Not Recovered/Not Resolved]
  - Sedation [Not Recovered/Not Resolved]
  - Tremor [Not Recovered/Not Resolved]
